FAERS Safety Report 8355977-9 (Version None)
Quarter: 2012Q2

REPORT INFORMATION
  Report Type: 
  Country: None (occurrence: None)
  Receive Date: 20120514
  Receipt Date: 20120430
  Transmission Date: 20120825
  Serious: Yes (Hospitalization)
  Sender: FDA-Public Use
  Company Number: US-JNJFOC-20120501174

PATIENT
  Sex: Male

DRUGS (7)
  1. TYLENOL (CAPLET) [Concomitant]
     Indication: ARTHRALGIA
     Route: 065
  2. PREDNISONE TAB [Suspect]
     Indication: PSORIATIC ARTHROPATHY
     Route: 048
     Dates: end: 20110101
  3. DILTIAZEM [Concomitant]
     Indication: BLOOD PRESSURE
     Route: 048
  4. LASIX [Concomitant]
     Indication: OEDEMA PERIPHERAL
     Route: 048
     Dates: end: 20110101
  5. VITAMIN B-12 [Concomitant]
     Indication: VITAMIN SUPPLEMENTATION
     Route: 065
  6. OMEPRAZOLE [Concomitant]
     Indication: DYSPEPSIA
     Route: 048
  7. REMICADE [Suspect]
     Indication: PSORIATIC ARTHROPATHY
     Route: 042
     Dates: start: 20100101, end: 20110401

REACTIONS (5)
  - ABNORMAL LOSS OF WEIGHT [None]
  - SYNCOPE [None]
  - OSTEOPENIA [None]
  - SEPSIS [None]
  - DEHYDRATION [None]
